FAERS Safety Report 14984580 (Version 1)
Quarter: 2020Q3

REPORT INFORMATION
  Report Type: Spontaneous
  Country: ES (occurrence: ES)
  Receive Date: 20180607
  Receipt Date: 20180607
  Transmission Date: 20201105
  Serious: Yes (Disabling)
  Sender: FDA-Public Use
  Company Number: IND-ES-009507513-1805ESP013779

PATIENT
  Age: 35 Year
  Sex: Female
  Weight: 53 kg

DRUGS (2)
  1. QLAIRA [Concomitant]
     Active Substance: DIENOGEST\ESTRADIOL VALERATE
     Indication: ORAL CONTRACEPTION
     Dosage: DIARIAMENTE
     Dates: start: 20160901
  2. ACOXXEL 90 MG COMPRIMIDOS RECUBIERTOS CON PEL?CULA [Suspect]
     Active Substance: ETORICOXIB
     Indication: ARTHRITIS
     Dosage: 1 VEZ AL D?A
     Route: 048
     Dates: start: 20170601, end: 20180219

REACTIONS (3)
  - Pain [Not Recovered/Not Resolved]
  - Impaired healing [Not Recovered/Not Resolved]
  - Alveolar osteitis [Not Recovered/Not Resolved]

NARRATIVE: CASE EVENT DATE: 20180219
